FAERS Safety Report 8808775 (Version 2)
Quarter: 2012Q4

REPORT INFORMATION
  Report Type: 
  Country: ES (occurrence: ES)
  Receive Date: 20120926
  Receipt Date: 20121008
  Transmission Date: 20130627
  Serious: Yes (Hospitalization)
  Sender: FDA-Public Use
  Company Number: ES-PFIZER INC-2012236339

PATIENT
  Age: 75 Year
  Sex: Male

DRUGS (14)
  1. TRANGOREX [Suspect]
     Indication: ATRIAL FIBRILLATION
     Dosage: 200 mg Daily (1-0-0)
     Route: 048
     Dates: start: 20120716, end: 20120802
  2. PRADAXA [Suspect]
     Indication: PROPHYLAXIS
     Dosage: 110 mg, Twice a day (1-0-1)
     Route: 048
     Dates: start: 20120716, end: 20120802
  3. ADIRO [Concomitant]
     Dosage: 100, 1-0-0
     Dates: start: 2007
  4. ORBENIN [Concomitant]
     Dosage: 500 mg, 2 tablets / 6 hours
     Dates: start: 20120717
  5. LEVOFLOXACIN [Concomitant]
     Dosage: 500, UNK
     Dates: start: 201207, end: 20120727
  6. TARDYFERON [Concomitant]
     Dosage: 1-0-0
  7. ACFOL [Concomitant]
     Dosage: 1-0-0
  8. OMEPRAZOLE [Concomitant]
     Dosage: 20, 1-0-0
  9. ZYLORIC [Concomitant]
     Dosage: 300 mg, 1-0-0
  10. ENALAPRIL [Concomitant]
     Dosage: 5 mg, 1-0-1
  11. NORVAS [Concomitant]
     Dosage: 5 mg, 1-0-1
  12. SEGURIL [Concomitant]
     Dosage: 2-1-0
  13. ALIPZA [Concomitant]
     Dosage: 1 mg, 0- 0-1
  14. SPIRIVA [Concomitant]
     Dosage: UNK

REACTIONS (3)
  - Lower gastrointestinal haemorrhage [Recovered/Resolved]
  - Iron deficiency anaemia [Recovered/Resolved]
  - Acute coronary syndrome [Recovered/Resolved]
